FAERS Safety Report 6093676-7 (Version None)
Quarter: 2009Q1

REPORT INFORMATION
  Report Type: 
  Country: None (occurrence: None)
  Receive Date: 20090223
  Receipt Date: 20090223
  Transmission Date: 20090719
  Serious: Yes (Life-Threatening, Hospitalization)
  Sender: FDA-Public Use
  Company Number: None

PATIENT
  Age: 46 Year
  Sex: Female
  Weight: 70.7611 kg

DRUGS (1)
  1. ENBREL [Suspect]
     Indication: PSORIASIS
     Dosage: 50MG/ML 3 TO 4 DAYS ID
     Dates: start: 20040101, end: 20080515

REACTIONS (2)
  - CARDIAC FAILURE CONGESTIVE [None]
  - LYMPHOMA [None]
